FAERS Safety Report 13130722 (Version 1)
Quarter: 2017Q1

REPORT INFORMATION
  Report Type: Spontaneous
  Country: US (occurrence: US)
  Receive Date: 20170118
  Receipt Date: 20170118
  Transmission Date: 20170428
  Serious: Yes (Hospitalization)
  Sender: FDA-Public Use
  Company Number: None

PATIENT
  Age: 51 Year
  Sex: Male
  Weight: 74.5 kg

DRUGS (1)
  1. ALLOPURINOL. [Suspect]
     Active Substance: ALLOPURINOL
     Indication: GOUT
     Dosage: MG PO
     Route: 048
     Dates: start: 20150724, end: 20161221

REACTIONS (9)
  - Blood creatinine increased [None]
  - Gout [None]
  - Fall [None]
  - Urticaria [None]
  - Pruritus [None]
  - Blood uric acid increased [None]
  - Joint injury [None]
  - Angioedema [None]
  - Skin abrasion [None]

NARRATIVE: CASE EVENT DATE: 20161221
